FAERS Safety Report 7258125-1 (Version None)
Quarter: 2011Q1

REPORT INFORMATION
  Report Type: 
  Country: None (occurrence: None)
  Receive Date: 20110129
  Receipt Date: 20100701
  Transmission Date: 20110831
  Serious: No
  Sender: FDA-Public Use
  Company Number: US-ABBOTT-10P-163-0655536-00

PATIENT
  Sex: Female
  Weight: 90.8 kg

DRUGS (7)
  1. TRAZODONE [Concomitant]
     Indication: PAIN
  2. OMEPRAZOLE [Concomitant]
     Indication: GASTRIC DISORDER
  3. SULFASALAZINE [Concomitant]
     Indication: RHEUMATOID ARTHRITIS
  4. ZOLOFT [Concomitant]
     Indication: ANXIETY
  5. HUMIRA [Suspect]
     Indication: RHEUMATOID ARTHRITIS
     Dates: start: 20080101
  6. PREDNISONE [Concomitant]
     Indication: RHEUMATOID ARTHRITIS
  7. STOOL SOFTENER [Concomitant]
     Indication: CONSTIPATION

REACTIONS (1)
  - DRUG EFFECT DECREASED [None]
